FAERS Safety Report 23682283 (Version 1)
Quarter: 2024Q1

REPORT INFORMATION
  Report Type: Spontaneous
  Country: US (occurrence: None)
  Receive Date: 20240327
  Receipt Date: 20240327
  Transmission Date: 20240410
  Serious: Yes (Other)
  Sender: FDA-Public Use
  Company Number: None

PATIENT
  Age: 71 Year
  Sex: Male

DRUGS (1)
  1. SILDENAFIL [Suspect]
     Active Substance: SILDENAFIL
     Dosage: 1 MG DAILY ORAL?
     Route: 048
     Dates: start: 20231001, end: 20231001

REACTIONS (3)
  - Dizziness [None]
  - Nausea [None]
  - Discomfort [None]

NARRATIVE: CASE EVENT DATE: 20231001
